FAERS Safety Report 10027635 (Version 1)
Quarter: 2014Q1

REPORT INFORMATION
  Report Type: Spontaneous
  Country: US (occurrence: US)
  Receive Date: 20140321
  Receipt Date: 20140321
  Transmission Date: 20141002
  Serious: Yes (Other)
  Sender: FDA-Public Use
  Company Number: US-BEH-2014041117

PATIENT
  Age: 38 Year
  Sex: Male
  Weight: 62 kg

DRUGS (17)
  1. BERINERT [Suspect]
     Dosage: RATE 4 ML PER MINUTE AS NEEDED
     Route: 042
  2. BERINERT [Suspect]
     Dates: start: 20140213
  3. SODIUM CHLORIDE [Concomitant]
  4. EPIPEN [Concomitant]
  5. AMBIEN [Concomitant]
  6. DEXAMETHASONE [Concomitant]
  7. FUROSEMIDE [Concomitant]
  8. LORAZEPAM [Concomitant]
  9. TRIAMCINOLONE [Concomitant]
  10. ALFUZOSIN [Concomitant]
  11. DANAZOL [Concomitant]
  12. HYDROCODON-ACETAMINOPHEN [Concomitant]
  13. BACTRIM [Concomitant]
  14. DILAUDID [Concomitant]
  15. CARAFATE [Concomitant]
  16. DEXILANT [Concomitant]
  17. MAGIC MOUTH WASH [Concomitant]

REACTIONS (2)
  - Hereditary angioedema [Unknown]
  - Pharyngitis [Unknown]
